FAERS Safety Report 7482666-5 (Version None)
Quarter: 2011Q2

REPORT INFORMATION
  Report Type: 
  Country: None (occurrence: None)
  Receive Date: 20110516
  Receipt Date: 20110511
  Transmission Date: 20111010
  Serious: Yes (Other)
  Sender: FDA-Public Use
  Company Number: JP-PFIZER INC-2011091042

PATIENT
  Age: 62 Year
  Sex: Male

DRUGS (5)
  1. STROCAIN [Concomitant]
     Dosage: UNK
     Dates: start: 20060101
  2. LAC B [Concomitant]
     Dosage: UNK
     Dates: start: 20110301
  3. GOSHAKUSAN [Concomitant]
  4. VARENICLINE TARTRATE [Suspect]
     Dosage: 0.5 MG, 2X/DAY
     Route: 048
  5. VARENICLINE TARTRATE [Suspect]
     Indication: NICOTINE DEPENDENCE
     Dosage: UNK
     Route: 048
     Dates: start: 20110219

REACTIONS (1)
  - BREAST MASS [None]
